FAERS Safety Report 4478855-4 (Version None)
Quarter: 2004Q4

REPORT INFORMATION
  Report Type: 
  Country: None (occurrence: None)
  Receive Date: 20041013
  Receipt Date: 20041004
  Transmission Date: 20050328
  Serious: Yes (Hospitalization)
  Sender: FDA-Public Use
  Company Number: 2004PK01649

PATIENT
  Age: 71 Year
  Sex: Male
  Weight: 95 kg

DRUGS (9)
  1. CASODEX [Suspect]
     Indication: PROSTATE CANCER
     Dates: start: 20030818
  2. ZOLADEX [Suspect]
     Indication: PROSTATE CANCER
     Dates: start: 20030818
  3. ASPIRIN [Concomitant]
  4. PLAVIX [Concomitant]
  5. BELOC-ZOK MITE [Concomitant]
  6. NORVASC [Concomitant]
  7. ATORVASTATIN CALCIUM [Concomitant]
  8. LANTUS [Concomitant]
  9. BLOPRESS [Concomitant]

REACTIONS (1)
  - TRANSIENT ISCHAEMIC ATTACK [None]
